FAERS Safety Report 13942446 (Version 1)
Quarter: 2017Q3

REPORT INFORMATION
  Report Type: Spontaneous
  Country: US (occurrence: US)
  Receive Date: 20170907
  Receipt Date: 20170907
  Transmission Date: 20171127
  Serious: Yes (Hospitalization)
  Sender: FDA-Public Use
  Company Number: None

PATIENT
  Age: 35 Year
  Sex: Female

DRUGS (1)
  1. ZENPEP [Suspect]
     Active Substance: PANCRELIPASE AMYLASE\PANCRELIPASE LIPASE\PANCRELIPASE PROTEASE
     Dosage: ?          OTHER FREQUENCY:THREE TIMES A DAY;?
     Route: 048

REACTIONS (4)
  - Pancreatectomy [None]
  - Drug dose omission [None]
  - Therapy change [None]
  - Blood glucose increased [None]
